FAERS Safety Report 7710971-3 (Version None)
Quarter: 2011Q3

REPORT INFORMATION
  Report Type: 
  Country: None (occurrence: None)
  Receive Date: 20110825
  Receipt Date: 20110815
  Transmission Date: 20111222
  Serious: Yes (Hospitalization)
  Sender: FDA-Public Use
  Company Number: US-ASTRAZENECA-2011SE49050

PATIENT
  Age: 82 Year
  Sex: Male

DRUGS (2)
  1. PLAVIX [Suspect]
  2. SYMBICORT [Suspect]
     Route: 055

REACTIONS (2)
  - HAEMORRHAGE [None]
  - MALAISE [None]
